FAERS Safety Report 8259978-0 (Version None)
Quarter: 2012Q2

REPORT INFORMATION
  Report Type: 
  Country: None (occurrence: None)
  Receive Date: 20120404
  Receipt Date: 20120326
  Transmission Date: 20120825
  Serious: Yes (Other)
  Sender: FDA-Public Use
  Company Number: GB-JNJFOC-20120313815

PATIENT
  Age: 18 Month
  Sex: Male

DRUGS (2)
  1. ACETAMINOPHEN [Suspect]
     Indication: ACCIDENTAL DRUG INTAKE BY CHILD
     Route: 048
  2. ACETAMINOPHEN [Suspect]
     Route: 048

REACTIONS (3)
  - ACCIDENTAL DRUG INTAKE BY CHILD [None]
  - OVERDOSE [None]
  - FEELING ABNORMAL [None]
